FAERS Safety Report 5574432-2 (Version None)
Quarter: 2007Q4

REPORT INFORMATION
  Report Type: 
  Country: None (occurrence: None)
  Receive Date: 20071227
  Receipt Date: 20071217
  Transmission Date: 20080405
  Serious: Yes (Other)
  Sender: FDA-Public Use
  Company Number: US-ROCHE-534500

PATIENT
  Age: 69 Year
  Sex: Female

DRUGS (1)
  1. ACCUTANE [Suspect]
     Indication: DRUG USE FOR UNKNOWN INDICATION
     Dosage: THIS PATIENT WAS DISPENSED ACCUTANE 20 MG TWICE DAILY FOR A MONTH.
     Route: 065

REACTIONS (3)
  - DRY EYE [None]
  - EYE DISORDER [None]
  - EYE PAIN [None]
